FAERS Safety Report 18483821 (Version 1)
Quarter: 2020Q4

REPORT INFORMATION
  Report Type: Spontaneous
  Country: GB (occurrence: GB)
  Receive Date: 20201110
  Receipt Date: 20201110
  Transmission Date: 20210114
  Serious: Yes (Other)
  Sender: FDA-Public Use
  Company Number: GB-ALKEM LABORATORIES LIMITED-GB-ALKEM-2020-07813

PATIENT
  Sex: Male

DRUGS (2)
  1. LINEZOLID. [Suspect]
     Active Substance: LINEZOLID
     Indication: OSTEOMYELITIS ACUTE
     Dosage: 1200 MILLIGRAM, QD, (EVERY 1 DAY)
     Route: 048
     Dates: start: 20200825, end: 20200828
  2. TEICOPLANIN [Suspect]
     Active Substance: TEICOPLANIN
     Indication: OSTEOMYELITIS ACUTE
     Dosage: 1.2 GRAM, (ON ALTERNATE DAYS)
     Route: 042
     Dates: start: 20200819, end: 20200828

REACTIONS (2)
  - Renal impairment [Recovered/Resolved with Sequelae]
  - Glomerular filtration rate decreased [Unknown]

NARRATIVE: CASE EVENT DATE: 20200819
